FAERS Safety Report 12762167 (Version 1)
Quarter: 2016Q3

REPORT INFORMATION
  Report Type: Spontaneous
  Country: FR (occurrence: FR)
  Receive Date: 20160920
  Receipt Date: 20160920
  Transmission Date: 20161109
  Serious: Yes (Hospitalization)
  Sender: FDA-Public Use
  Company Number: FR-PFIZER INC-2016430793

PATIENT
  Age: 77 Year
  Sex: Male

DRUGS (6)
  1. ZAMUDOL [Suspect]
     Active Substance: TRAMADOL HYDROCHLORIDE
     Dosage: 50 MG, 2X/DAY
     Route: 048
     Dates: start: 20160810, end: 20160817
  2. FRAGMINE [Suspect]
     Active Substance: DALTEPARIN SODIUM
     Indication: THROMBOSIS PROPHYLAXIS
     Dosage: 1 DF, 1X/DAY
     Route: 058
     Dates: start: 20160810, end: 20160817
  3. OFLOXACINE MYLAN [Suspect]
     Active Substance: OFLOXACIN
     Indication: PROSTATITIS
     Dosage: 1 DF, 1X/DAY
     Route: 042
     Dates: start: 20160817, end: 20160818
  4. PRIMPERAN [Suspect]
     Active Substance: METOCLOPRAMIDE HYDROCHLORIDE
     Dosage: 1 DF, 3X/DAY
     Route: 042
     Dates: start: 20160816, end: 20160818
  5. BACTRIM [Suspect]
     Active Substance: SULFAMETHOXAZOLE\TRIMETHOPRIM
     Indication: PROSTATITIS
     Dosage: 2 DF, 1X/DAY
     Route: 042
     Dates: start: 20160818, end: 20160819
  6. ERYTHROCINE /00020901/ [Suspect]
     Active Substance: ERYTHROMYCIN
     Indication: PROSTATITIS
     Dosage: 3 DF, 1X/DAY
     Route: 042
     Dates: start: 20160817

REACTIONS (1)
  - Acute kidney injury [Recovering/Resolving]

NARRATIVE: CASE EVENT DATE: 20160819
